FAERS Safety Report 7887885-1 (Version None)
Quarter: 2011Q4

REPORT INFORMATION
  Report Type: 
  Country: None (occurrence: None)
  Receive Date: 20111103
  Receipt Date: 20111103
  Transmission Date: 20120403
  Serious: Yes (Hospitalization)
  Sender: FDA-Public Use
  Company Number: None

PATIENT
  Age: 86 Year
  Sex: Female
  Weight: 87 kg

DRUGS (21)
  1. CARVEDILOL [Concomitant]
     Route: 048
  2. CHOLECALCIFEROL [Concomitant]
     Route: 048
  3. ALLOPURINOL [Concomitant]
     Route: 048
  4. FENTANYL-100 [Concomitant]
     Route: 062
  5. OMEGA 3 FATTY ACID [Concomitant]
     Route: 048
  6. POLYETHYLENE GLYCOL [Concomitant]
  7. LORATADINE [Concomitant]
     Route: 048
  8. FUROSEMIDE [Concomitant]
     Route: 048
  9. LACTOBACILLUS [Concomitant]
     Route: 048
  10. MIDODRINE HYDROCHLORIDE [Concomitant]
     Route: 048
  11. OMEPRAZOLE [Concomitant]
     Route: 048
  12. PRAVASTATIN [Concomitant]
     Route: 048
  13. ERGOCALCIFEROL [Concomitant]
     Route: 048
  14. INSULIN GLARGINE [Concomitant]
     Route: 058
  15. ASPART INSULIN SCALE INSULIN [Concomitant]
     Route: 058
  16. FERROUS SULFATE TAB [Concomitant]
     Route: 048
  17. MULTI-VITAMIN [Concomitant]
     Route: 048
  18. WARFARIN SODIUM [Suspect]
     Indication: ANTICOAGULANT THERAPY
     Dosage: 6 MG
     Route: 048
  19. WARFARIN SODIUM [Suspect]
     Indication: ATRIAL FIBRILLATION
     Dosage: 6 MG
     Route: 048
  20. AMIODARONE HCL [Concomitant]
     Route: 048
  21. CLONAZEPAM [Concomitant]
     Route: 048

REACTIONS (3)
  - INTERNATIONAL NORMALISED RATIO INCREASED [None]
  - ANAL HAEMORRHAGE [None]
  - ANAL FISSURE [None]
